FAERS Safety Report 8593417 (Version 2)
Quarter: 2013Q2

REPORT INFORMATION
  Report Type: Spontaneous
  Country: US (occurrence: US)
  Receive Date: 20120604
  Receipt Date: 20130617
  Transmission Date: 20140414
  Serious: Yes (Disabling)
  Sender: FDA-Public Use
  Company Number: US-ASTRAZENECA-2012SE34869

PATIENT
  Age: 39 Year
  Sex: Female
  Weight: 128.8 kg

DRUGS (15)
  1. NEXIUM [Suspect]
     Indication: DYSPEPSIA
     Dosage: ONCE A DAY
     Route: 048
     Dates: start: 2005
  2. NEXIUM [Suspect]
     Indication: GASTROOESOPHAGEAL REFLUX DISEASE
     Dosage: ONCE A DAY
     Route: 048
     Dates: start: 2005
  3. ZEGERID [Concomitant]
  4. PREVACID [Concomitant]
  5. TUMS [Concomitant]
     Dosage: EVERDDAY
  6. ALKA SELTZER [Concomitant]
  7. PEPTO-BISMOL [Concomitant]
  8. ROLAIDS [Concomitant]
  9. ADVAIR [Concomitant]
  10. SINGULAIR [Concomitant]
     Indication: ASTHMA
  11. BABY ASPRIN [Concomitant]
     Indication: CARDIAC DISORDER
  12. FLEXERIL [Concomitant]
     Indication: ARTHRITIS
  13. PROVERA [Concomitant]
     Indication: HORMONE THERAPY
     Dosage: TWICE DAILY
  14. GINSENG [Concomitant]
  15. MULTIVITAMIN [Concomitant]

REACTIONS (10)
  - Osteoporosis [Unknown]
  - Asthma [Unknown]
  - Local swelling [Unknown]
  - Multiple fractures [Unknown]
  - Arthralgia [Unknown]
  - Ligament sprain [Unknown]
  - Fall [Unknown]
  - Arthritis [Unknown]
  - Chronic obstructive pulmonary disease [Unknown]
  - Rheumatoid arthritis [Unknown]
